FAERS Safety Report 23778302 (Version 1)
Quarter: 2024Q2

REPORT INFORMATION
  Report Type: Spontaneous
  Country: US (occurrence: US)
  Receive Date: 20240424
  Receipt Date: 20240424
  Transmission Date: 20240716
  Serious: Yes (Other)
  Sender: FDA-Public Use
  Company Number: US-SANDOZ-SDZ2024US041926

PATIENT
  Sex: Male

DRUGS (5)
  1. AZITHROMYCIN [Suspect]
     Active Substance: AZITHROMYCIN
     Indication: Mycobacterium chelonae infection
     Dosage: UNK
     Route: 065
  2. AMIKACIN [Suspect]
     Active Substance: AMIKACIN
     Indication: Mycobacterium chelonae infection
     Dosage: UNK
     Route: 042
  3. IMIPENEM [Suspect]
     Active Substance: IMIPENEM
     Indication: Mycobacterium chelonae infection
     Dosage: UNK
     Route: 065
  4. OMADACYCLINE [Suspect]
     Active Substance: OMADACYCLINE
     Indication: Mycobacterium chelonae infection
     Dosage: UNK
     Route: 065
  5. TOBRAMYCIN [Suspect]
     Active Substance: TOBRAMYCIN\TOBRAMYCIN SULFATE
     Indication: Mycobacterium chelonae infection
     Dosage: UNK
     Route: 065

REACTIONS (4)
  - Osteomyelitis [Unknown]
  - Skin lesion [Unknown]
  - Disease progression [Unknown]
  - Drug ineffective [Unknown]
